FAERS Safety Report 21130577 (Version 1)
Quarter: 2022Q3

REPORT INFORMATION
  Report Type: Spontaneous
  Country: US (occurrence: US)
  Receive Date: 20220726
  Receipt Date: 20220726
  Transmission Date: 20221027
  Serious: No
  Sender: FDA-Public Use
  Company Number: US-drreddys-SPO/USA/22/0152608

PATIENT
  Age: 34 Year
  Sex: Female

DRUGS (1)
  1. ZENATANE [Suspect]
     Active Substance: ISOTRETINOIN
     Indication: Acne
     Dosage: RMA ISSUE DATE: 28 MARCH 2022 05:42:40 PM, 3 MAY 2022 05:43:39 PM AND 15 JUNE 2022 09:30:00 AM

REACTIONS (1)
  - Adverse drug reaction [Unknown]
